FAERS Safety Report 5954407-1 (Version None)
Quarter: 2008Q4

REPORT INFORMATION
  Report Type: 
  Country: None (occurrence: None)
  Receive Date: 20081113
  Receipt Date: 20081113
  Transmission Date: 20090506
  Serious: Yes (Death, Hospitalization)
  Sender: FDA-Public Use
  Company Number: None

PATIENT
  Sex: Female
  Weight: 61.8 kg

DRUGS (2)
  1. CYTARABINE [Suspect]
     Dosage: 1127 MG
     Dates: end: 20080506
  2. DAUNORUBICIN [Suspect]
     Dosage: 291 MG
     Dates: end: 20080502

REACTIONS (17)
  - ABSCESS [None]
  - ACUTE ABDOMEN [None]
  - APPENDIX DISORDER [None]
  - ENTEROCOCCAL BACTERAEMIA [None]
  - FIBROSIS [None]
  - GASTROINTESTINAL DISORDER [None]
  - GASTROINTESTINAL HAEMORRHAGE [None]
  - GASTROINTESTINAL NECROSIS [None]
  - GASTROINTESTINAL OBSTRUCTION [None]
  - GENERAL PHYSICAL HEALTH DETERIORATION [None]
  - HAEMOGLOBIN DECREASED [None]
  - INTESTINAL ISCHAEMIA [None]
  - LARGE INTESTINAL HAEMORRHAGE [None]
  - LEUKAEMIA [None]
  - NECROSIS [None]
  - NEUTROPENIC COLITIS [None]
  - NO THERAPEUTIC RESPONSE [None]
